FAERS Safety Report 14392427 (Version 1)
Quarter: 2018Q1

REPORT INFORMATION
  Report Type: Report from Study
  Country: NL (occurrence: NL)
  Receive Date: 20180116
  Receipt Date: 20180116
  Transmission Date: 20180509
  Serious: Yes (Other)
  Sender: FDA-Public Use
  Company Number: PHHY2018NL004690

PATIENT
  Age: 75 Year
  Sex: Female

DRUGS (2)
  1. ZOMETA [Suspect]
     Active Substance: ZOLEDRONIC ACID
     Indication: BREAST CANCER
     Dosage: 1 DF, ONCE PER 26 WEEKS
     Route: 042
  2. ZOMETA [Suspect]
     Active Substance: ZOLEDRONIC ACID
     Dosage: 1 DF, ONCE PER 26 WEEKS
     Route: 042
     Dates: start: 20160714

REACTIONS (6)
  - Agitation [Unknown]
  - Aggression [Unknown]
  - Dementia [Not Recovered/Not Resolved]
  - Anger [Unknown]
  - Inappropriate schedule of drug administration [Unknown]
  - Frustration tolerance decreased [Unknown]

NARRATIVE: CASE EVENT DATE: 20180111
